FAERS Safety Report 13257605 (Version 2)
Quarter: 2017Q2

REPORT INFORMATION
  Report Type: Report from Study
  Country: CO (occurrence: CO)
  Receive Date: 20170221
  Receipt Date: 20170405
  Transmission Date: 20170830
  Serious: Yes (Hospitalization)
  Sender: FDA-Public Use
  Company Number: PHHY2016CO099356

PATIENT
  Sex: Male
  Weight: 90 kg

DRUGS (1)
  1. VOTRIENT [Suspect]
     Active Substance: PAZOPANIB HYDROCHLORIDE
     Indication: SOFT TISSUE SARCOMA
     Dosage: 200 MG, QID
     Route: 048
     Dates: start: 20160201, end: 20161010

REACTIONS (4)
  - Diarrhoea [Unknown]
  - Neoplasm [Unknown]
  - Drug ineffective [Unknown]
  - Gastrointestinal disorder [Unknown]
